FAERS Safety Report 4964243-0 (Version None)
Quarter: 2006Q1

REPORT INFORMATION
  Report Type: 
  Country: None (occurrence: None)
  Receive Date: 20060331
  Receipt Date: 20060317
  Transmission Date: 20060701
  Serious: Yes (Other)
  Sender: FDA-Public Use
  Company Number: US200603003352

PATIENT
  Age: 14 Year
  Sex: Female
  Weight: 60.8 kg

DRUGS (3)
  1. STRATTERA [Suspect]
     Indication: ATTENTION DEFICIT/HYPERACTIVITY DISORDER
     Dosage: 40 MG,
     Dates: start: 20040101, end: 20040901
  2. STRATTERA [Suspect]
     Indication: ATTENTION DEFICIT/HYPERACTIVITY DISORDER
     Dosage: 40 MG,
  3. DEPRO PROVERA (MEDROXYPROGESTERONE ACETATE) [Concomitant]

REACTIONS (1)
  - CATATONIA [None]
